FAERS Safety Report 12887187 (Version 1)
Quarter: 2016Q4

REPORT INFORMATION
  Report Type: Spontaneous
  Country: US (occurrence: US)
  Receive Date: 20161026
  Receipt Date: 20161026
  Transmission Date: 20170207
  Serious: No
  Sender: FDA-Public Use
  Company Number: US-ABBVIE-16P-163-1754393-00

PATIENT
  Sex: Female

DRUGS (1)
  1. LUPRON DEPOT [Suspect]
     Active Substance: LEUPROLIDE ACETATE
     Indication: ENDOMETRIOSIS
     Route: 065

REACTIONS (9)
  - Infertility female [Unknown]
  - Depression [Unknown]
  - Weight increased [Unknown]
  - Bone density decreased [Unknown]
  - Amnesia [Unknown]
  - Back pain [Unknown]
  - Feeling abnormal [Unknown]
  - Muscle spasms [Unknown]
  - Hot flush [Unknown]
